FAERS Safety Report 13603101 (Version 4)
Quarter: 2017Q3

REPORT INFORMATION
  Report Type: Report from Study
  Country: US (occurrence: US)
  Receive Date: 20170601
  Receipt Date: 20170706
  Transmission Date: 20171127
  Serious: Yes (Disabling, Other)
  Sender: FDA-Public Use
  Company Number: US-MALLINCKRODT-T201701822

PATIENT
  Age: 48 Year
  Sex: Female

DRUGS (5)
  1. REPOSITORY CORTICOTROPIN INJECTION [Suspect]
     Active Substance: CORTICOTROPIN
     Dosage: 40 UNITS / .5 ML, 2 TIMES PER WEEK, MONDAY ANA FRI
     Route: 030
     Dates: start: 20151213
  2. REPOSITORY CORTICOTROPIN INJECTION [Suspect]
     Active Substance: CORTICOTROPIN
     Dosage: 40 UNITS / .5 ML, 2 TIMES PER WEEK, MONDAY AND THURSDAYS
     Route: 030
     Dates: start: 20151213
  3. REPOSITORY CORTICOTROPIN INJECTION [Suspect]
     Active Substance: CORTICOTROPIN
     Dosage: 40 UNITS / .5 ML,  2 TIMES PER WEEK, TUESDAY + FRIDAYS
     Route: 058
     Dates: start: 20151213
  4. REPOSITORY CORTICOTROPIN INJECTION [Suspect]
     Active Substance: CORTICOTROPIN
     Indication: SARCOIDOSIS
     Dosage: 40 UNITS / .5 ML, 2 TIMES PER WEEK, TUES/SAT
     Route: 030
     Dates: start: 20151213
  5. REPOSITORY CORTICOTROPIN INJECTION [Suspect]
     Active Substance: CORTICOTROPIN
     Dosage: 40 UNITS / .5 ML,  2 TIMES PER WEEK, MONDAY AND THURSDAYS
     Route: 058
     Dates: start: 20151213

REACTIONS (19)
  - Memory impairment [Not Recovered/Not Resolved]
  - Constipation [Recovering/Resolving]
  - Vomiting [Recovering/Resolving]
  - Dehydration [Unknown]
  - Bladder prolapse [Not Recovered/Not Resolved]
  - Condition aggravated [Not Recovered/Not Resolved]
  - Disability [Not Recovered/Not Resolved]
  - Gait disturbance [Unknown]
  - Insomnia [Not Recovered/Not Resolved]
  - Bladder pain [Not Recovered/Not Resolved]
  - Injection site pain [Not Recovered/Not Resolved]
  - Weight decreased [Not Recovered/Not Resolved]
  - Diarrhoea [Recovering/Resolving]
  - Injection site pruritus [Not Recovered/Not Resolved]
  - Injection site bruising [Not Recovered/Not Resolved]
  - Injection site swelling [Not Recovered/Not Resolved]
  - Rectal haemorrhage [Unknown]
  - Back pain [Not Recovered/Not Resolved]
  - Sleep apnoea syndrome [Unknown]

NARRATIVE: CASE EVENT DATE: 20151213
